FAERS Safety Report 9748125 (Version 6)
Quarter: 2015Q4

REPORT INFORMATION
  Report Type: Spontaneous
  Country: US (occurrence: US)
  Receive Date: 20131212
  Receipt Date: 20151112
  Transmission Date: 20160305
  Serious: Yes (Hospitalization, Other)
  Sender: FDA-Public Use
  Company Number: US-PFIZER INC-2013353088

PATIENT
  Age: 65 Year
  Sex: Female
  Weight: 59 kg

DRUGS (2)
  1. PREMPRO [Suspect]
     Active Substance: ESTROGENS, CONJUGATED\MEDROXYPROGESTERONE ACETATE
     Dosage: 1 DF (0.625 MG/5 MG ), 1X/DAY
     Dates: start: 201302
  2. PREMPRO [Suspect]
     Active Substance: ESTROGENS, CONJUGATED\MEDROXYPROGESTERONE ACETATE
     Indication: MENOPAUSAL SYMPTOMS
     Dosage: 1 DF (0.625 MG/5 MG ), 1X/DAY
     Route: 048
     Dates: start: 1999

REACTIONS (12)
  - Influenza [Recovered/Resolved]
  - Drug intolerance [Unknown]
  - Feeling abnormal [Recovered/Resolved]
  - Product counterfeit [Unknown]
  - Malaise [Recovered/Resolved]
  - Weight increased [Recovered/Resolved]
  - Activities of daily living impaired [Recovered/Resolved]
  - Vaginal haemorrhage [Not Recovered/Not Resolved]
  - Uterine pain [Recovered/Resolved]
  - Muscle spasms [Recovered/Resolved]
  - Hunger [Recovered/Resolved]
  - Drug ineffective [Recovered/Resolved]

NARRATIVE: CASE EVENT DATE: 201311
